FAERS Safety Report 17191283 (Version 1)
Quarter: 2019Q4

REPORT INFORMATION
  Report Type: Spontaneous
  Country: US (occurrence: US)
  Receive Date: 20191221
  Receipt Date: 20191221
  Transmission Date: 20200122
  Serious: Yes (Hospitalization)
  Sender: FDA-Public Use
  Company Number: None

PATIENT
  Age: 30 Year
  Weight: 117 kg

DRUGS (11)
  1. ALLEGRA [Concomitant]
     Active Substance: FEXOFENADINE HYDROCHLORIDE
  2. MUCINEX [Concomitant]
     Active Substance: GUAIFENESIN
  3. BENADRYL [Concomitant]
     Active Substance: DIPHENHYDRAMINE HYDROCHLORIDE
  4. ESTRADIOL 1MG TABLET [Concomitant]
     Active Substance: ESTRADIOL
  5. GADOLINIUM [Suspect]
     Active Substance: GADOLINIUM
     Indication: SCAN WITH CONTRAST
     Dates: start: 20191220, end: 20191220
  6. LATANOPROST. [Concomitant]
     Active Substance: LATANOPROST
  7. MULTIVITES WOMENS VITAMINS [Concomitant]
  8. BIOTIN/COLLAGEN SUPPLEMENT [Concomitant]
  9. SPIRONOLACTONE 50MG [Concomitant]
     Active Substance: SPIRONOLACTONE
  10. ADDERALL XR [Concomitant]
     Active Substance: AMPHETAMINE ASPARTATE\AMPHETAMINE SULFATE\DEXTROAMPHETAMINE SACCHARATE\DEXTROAMPHETAMINE SULFATE
  11. MELATONIN [Concomitant]
     Active Substance: MELATONIN

REACTIONS (7)
  - Dizziness [None]
  - Musculoskeletal stiffness [None]
  - Hyperhidrosis [None]
  - Feeling hot [None]
  - Pain [None]
  - Injection site paraesthesia [None]
  - Nausea [None]

NARRATIVE: CASE EVENT DATE: 20191220
